FAERS Safety Report 6181117-0 (Version None)
Quarter: 2009Q2

REPORT INFORMATION
  Report Type: 
  Country: None (occurrence: None)
  Receive Date: 20090506
  Receipt Date: 20090424
  Transmission Date: 20091009
  Serious: Yes (Hospitalization)
  Sender: FDA-Public Use
  Company Number: PHHY2009CA15813

PATIENT
  Sex: Female

DRUGS (1)
  1. CO-DIOVAN T32564+ [Suspect]
     Dosage: 160/12.5 MG
     Route: 048
     Dates: start: 20080401

REACTIONS (5)
  - BLOOD PRESSURE SYSTOLIC INCREASED [None]
  - CHEST DISCOMFORT [None]
  - MUSCLE TIGHTNESS [None]
  - MYOCARDIAL INFARCTION [None]
  - MYOPERICARDITIS [None]
